FAERS Safety Report 6009276-0 (Version None)
Quarter: 2008Q4

REPORT INFORMATION
  Report Type: 
  Country: None (occurrence: None)
  Receive Date: 20081217
  Receipt Date: 20080320
  Transmission Date: 20090506
  Serious: Yes (Other)
  Sender: FDA-Public Use
  Company Number: US-AMGEN-QUU270735

PATIENT
  Sex: Female

DRUGS (3)
  1. ENBREL [Suspect]
     Indication: RHEUMATOID ARTHRITIS
     Route: 058
     Dates: start: 20070801, end: 20071001
  2. METHOTREXATE [Concomitant]
     Dates: start: 19960101
  3. LEFLUNOMIDE [Concomitant]
     Dates: start: 19960101

REACTIONS (2)
  - MALIGNANT MELANOMA [None]
  - RHEUMATOID ARTHRITIS [None]
